FAERS Safety Report 19725577 (Version 1)
Quarter: 2021Q3

REPORT INFORMATION
  Report Type: Spontaneous
  Country: JP (occurrence: JP)
  Receive Date: 20210819
  Receipt Date: 20210819
  Transmission Date: 20211014
  Serious: Yes (Other)
  Sender: FDA-Public Use
  Company Number: JP-BRACCO-2021JP03578

PATIENT
  Age: 70 Year
  Sex: Female

DRUGS (1)
  1. IOPAMIDOL [Suspect]
     Active Substance: IOPAMIDOL
     Indication: ANGIOGRAM CEREBRAL
     Dosage: 43 ML, SINGLE

REACTIONS (1)
  - Contrast encephalopathy [Recovered/Resolved]
